FAERS Safety Report 24422332 (Version 1)
Quarter: 2024Q4

REPORT INFORMATION
  Report Type: Spontaneous
  Country: US (occurrence: None)
  Receive Date: 20241009
  Receipt Date: 20241009
  Transmission Date: 20250115
  Serious: No
  Sender: Public
  Company Number: None

PATIENT
  Age: 69 Year
  Sex: Male

DRUGS (1)
  1. LISINOPRIL [Suspect]
     Active Substance: LISINOPRIL
     Dates: start: 20230420, end: 20240603

REACTIONS (1)
  - Angioedema [None]

NARRATIVE: CASE EVENT DATE: 20240608
